FAERS Safety Report 5847183-4 (Version None)
Quarter: 2008Q3

REPORT INFORMATION
  Report Type: 
  Country: None (occurrence: None)
  Receive Date: 20080815
  Receipt Date: 20080811
  Transmission Date: 20090109
  Serious: Yes (Other)
  Sender: FDA-Public Use
  Company Number: PHHY2008AR17783

PATIENT
  Sex: Male

DRUGS (3)
  1. EXFORGE [Suspect]
     Indication: HYPERTENSION
     Dosage: 160 MG, QD
     Dates: start: 20050101
  2. ATENOLOL [Concomitant]
  3. RANITIDINE [Concomitant]

REACTIONS (6)
  - CATARACT [None]
  - CATARACT OPERATION [None]
  - CORNEAL TRANSPLANT [None]
  - EYE INJURY [None]
  - EYE OPERATION [None]
  - FALL [None]
